FAERS Safety Report 9494539 (Version 1)
Quarter: 2013Q3

REPORT INFORMATION
  Report Type: Spontaneous
  Country: US (occurrence: None)
  Receive Date: 20130830
  Receipt Date: 20130830
  Transmission Date: 20140515
  Serious: Yes (Disabling)
  Sender: FDA-Public Use
  Company Number: None

PATIENT
  Age: 67 Year
  Sex: Female
  Weight: 85.73 kg

DRUGS (11)
  1. LEVOFLOXACIN [Suspect]
     Indication: BRONCHITIS
     Dosage: 7 PILLS 1 A DAY BY MOUTH
     Route: 048
     Dates: start: 20130314, end: 20130320
  2. ASPIRIN [Concomitant]
  3. COUMADIN [Concomitant]
  4. POTASSIUM CHLORIDE [Concomitant]
  5. LISINOPRIL [Concomitant]
  6. FUROSEMIDE [Concomitant]
  7. LEVOTHYROXINE [Concomitant]
  8. NIACIN [Concomitant]
  9. TRAMADOL [Concomitant]
  10. DIPROPIONATE HFA [Suspect]
  11. STOOL SOFTNERS [Concomitant]

REACTIONS (5)
  - Pain [None]
  - Pain [None]
  - Abasia [None]
  - Hyperaesthesia [None]
  - Cerebrovascular accident [None]
